FAERS Safety Report 26179800 (Version 1)
Quarter: 2025Q4

REPORT INFORMATION
  Report Type: Spontaneous
  Country: US (occurrence: None)
  Receive Date: 20251218
  Receipt Date: 20251218
  Transmission Date: 20260118
  Serious: Yes (Life-Threatening, Hospitalization)
  Sender: FDA-CTU
  Company Number: None

PATIENT
  Age: 69 Year
  Sex: Female
  Weight: 49.5 kg

DRUGS (1)
  1. ELIQUIS [Suspect]
     Active Substance: APIXABAN
     Indication: Thrombosis
     Dosage: OTHER QUANTITY : 1 TABLET(S);?FREQUENCY : TWICE A DAY;
     Route: 048
     Dates: start: 20251025, end: 20251101

REACTIONS (5)
  - Internal haemorrhage [None]
  - Dyspnoea [None]
  - Increased tendency to bruise [None]
  - Anosmia [None]
  - Ageusia [None]

NARRATIVE: CASE EVENT DATE: 20251025
